FAERS Safety Report 7420259-6 (Version None)
Quarter: 2011Q2

REPORT INFORMATION
  Report Type: 
  Country: None (occurrence: None)
  Receive Date: 20110418
  Receipt Date: 20110412
  Transmission Date: 20111010
  Serious: Yes (Disabling)
  Sender: FDA-Public Use
  Company Number: NO-TEVA-208498ISR

PATIENT
  Sex: Male

DRUGS (5)
  1. SALBUTAMOL SULFATE [Concomitant]
     Dates: start: 20070501
  2. BUDESONIDE W/FORMOTEROL FUMARATE [Suspect]
     Indication: ASTHMA
     Dosage: 160/4.5
     Dates: start: 20030101, end: 20070501
  3. SALBUTAMOL SULFATE [Suspect]
     Indication: ASTHMA
     Dates: start: 20030101, end: 20070501
  4. FLUTICASONE PROPIONATE W/SALMETEROL [Concomitant]
     Indication: ASTHMA
     Dosage: 25/250
     Dates: start: 20070501
  5. THEOPHYLLINE [Suspect]
     Indication: ASTHMA
     Dates: start: 19990101

REACTIONS (2)
  - EPIDURAL LIPOMATOSIS [None]
  - BACK PAIN [None]
